FAERS Safety Report 6724732-5 (Version None)
Quarter: 2010Q2

REPORT INFORMATION
  Report Type: 
  Country: None (occurrence: None)
  Receive Date: 20100513
  Receipt Date: 20100511
  Transmission Date: 20101027
  Serious: Yes (Hospitalization)
  Sender: FDA-Public Use
  Company Number: US-GILEAD-2010-0028337

PATIENT
  Sex: Female
  Weight: 108.96 kg

DRUGS (26)
  1. LETAIRIS [Suspect]
     Indication: PULMONARY ARTERIAL HYPERTENSION
     Route: 048
     Dates: start: 20070809
  2. REMODULIN [Concomitant]
  3. OXYGEN [Concomitant]
  4. COUMADIN [Concomitant]
  5. ASPIRIN [Concomitant]
  6. LASIX [Concomitant]
  7. COZAAR [Concomitant]
  8. DIGOXIN [Concomitant]
  9. COREG [Concomitant]
  10. SIMVASTATIN [Concomitant]
  11. PREDNISONE [Concomitant]
  12. ZOLOFT [Concomitant]
  13. LOMOTIL [Concomitant]
  14. MECLIZINE [Concomitant]
  15. CLOMIPRAMINE [Concomitant]
  16. CORTISPORIN [Concomitant]
  17. SYNTHROID [Concomitant]
  18. PLAQUENIL [Concomitant]
  19. ALPRAZOLAM [Concomitant]
  20. TYLENOL-500 [Concomitant]
  21. SODIUM CHLORIDE [Concomitant]
  22. POTASSIUM CHLORIDE [Concomitant]
  23. CALCIUM [Concomitant]
  24. FERROUS SULFATE TAB [Concomitant]
  25. K-DUR [Concomitant]
  26. VITAMIN D [Concomitant]

REACTIONS (1)
  - HIP FRACTURE [None]
